FAERS Safety Report 4377242-7 (Version None)
Quarter: 2004Q2

REPORT INFORMATION
  Report Type: 
  Country: None (occurrence: None)
  Receive Date: 20040609
  Receipt Date: 20040318
  Transmission Date: 20050107
  Serious: No
  Sender: FDA-Public Use
  Company Number: 2004205390US

PATIENT
  Age: 81 Year
  Sex: Female

DRUGS (1)
  1. BEXTRA [Suspect]
     Indication: SPINAL COLUMN STENOSIS
     Dosage: 10 MG BID
     Dates: start: 20040101

REACTIONS (3)
  - ARTHRALGIA [None]
  - DIFFICULTY IN WALKING [None]
  - DRUG INEFFECTIVE [None]
